FAERS Safety Report 15570932 (Version 1)
Quarter: 2018Q4

REPORT INFORMATION
  Report Type: Spontaneous
  Country: KR (occurrence: KR)
  Receive Date: 20181031
  Receipt Date: 20181031
  Transmission Date: 20190205
  Serious: Yes (Death)
  Sender: FDA-Public Use
  Company Number: KR-HQ SPECIALTY-KR-2018INT000209

PATIENT
  Sex: Female

DRUGS (5)
  1. CISPLATIN. [Suspect]
     Active Substance: CISPLATIN
     Indication: CERVIX CARCINOMA RECURRENT
     Dosage: 50 MG/M2, (1 HOUR ON DAY 2)
     Route: 065
  2. CARBOPLATIN. [Suspect]
     Active Substance: CARBOPLATIN
     Indication: CERVIX CARCINOMA RECURRENT
     Dosage: AUC 5 OVER 1 HOUR ON DAY 2
     Route: 065
  3. MESNA. [Suspect]
     Active Substance: MESNA
     Indication: CERVIX CARCINOMA RECURRENT
     Dosage: 600 MG/M2, GIVEN ON DAYS 2 TO 4
     Route: 065
  4. PACLITAXEL. [Suspect]
     Active Substance: PACLITAXEL
     Indication: CERVIX CARCINOMA RECURRENT
     Dosage: 135 MG/M2, OVER 3 HOURS
     Route: 065
  5. IFOSFAMIDE. [Suspect]
     Active Substance: IFOSFAMIDE
     Indication: CERVIX CARCINOMA RECURRENT
     Dosage: 1500 MG/M2, FOR 3 HOURS
     Route: 065

REACTIONS (3)
  - Febrile neutropenia [Fatal]
  - Intestinal perforation [Fatal]
  - Septic shock [Fatal]
